FAERS Safety Report 18915539 (Version 3)
Quarter: 2021Q1

REPORT INFORMATION
  Report Type: Report from Study
  Country: JP (occurrence: JP)
  Receive Date: 20210219
  Receipt Date: 20210331
  Transmission Date: 20210420
  Serious: Yes (Death, Life-Threatening, Hospitalization, Disabling, Other)
  Sender: FDA-Public Use
  Company Number: NVSJ2021JP002293

PATIENT
  Age: 50 Year
  Sex: Female

DRUGS (14)
  1. CONCENTRATED RED CELLS [Concomitant]
     Active Substance: HUMAN RED BLOOD CELL
     Dosage: 3600 ML
     Route: 065
     Dates: start: 20191231, end: 20200127
  2. PLATELETS [Concomitant]
     Active Substance: HUMAN PLATELET, ALLOGENIC
     Indication: PRODUCT USED FOR UNKNOWN INDICATION
     Dosage: 600 ML
     Route: 065
     Dates: start: 20191203, end: 20191230
  3. PLATELETS [Concomitant]
     Active Substance: HUMAN PLATELET, ALLOGENIC
     Dosage: 6600 ML, TRANSFUSION FREQUENCY 33/MONTH
     Route: 065
     Dates: start: 20200225, end: 20200323
  4. CONCENTRATED RED CELLS [Concomitant]
     Active Substance: HUMAN RED BLOOD CELL
     Indication: PRODUCT USED FOR UNKNOWN INDICATION
     Dosage: 1200 ML, TRANSFUSION FREQUENCY 3/MONTH
     Route: 065
     Dates: start: 20191203, end: 20191230
  5. PLATELETS [Concomitant]
     Active Substance: HUMAN PLATELET, ALLOGENIC
     Dosage: 1200 ML, TRANSFUSION FREQUENCY 6/MONTH
     Route: 065
     Dates: start: 20191231, end: 20200127
  6. NEORAL [Suspect]
     Active Substance: CYCLOSPORINE
     Indication: APLASTIC ANAEMIA
     Dosage: 320 MG
     Route: 048
     Dates: start: 20200128, end: 20200217
  7. SOLU?MEDROL [Concomitant]
     Active Substance: METHYLPREDNISOLONE SODIUM SUCCINATE
     Indication: APLASTIC ANAEMIA
     Dosage: 165 MG
     Route: 065
     Dates: start: 20200128, end: 20200201
  8. CONCENTRATED RED CELLS [Concomitant]
     Active Substance: HUMAN RED BLOOD CELL
     Dosage: 5600 ML, TRANSFUSION FREQUENCY 14/MONTH
     Route: 065
     Dates: start: 20200225, end: 20200323
  9. FILGRASTIM [Concomitant]
     Active Substance: FILGRASTIM
     Indication: APLASTIC ANAEMIA
     Dosage: 150 UG
     Route: 058
     Dates: start: 20200218, end: 20200224
  10. SANDIMMUN INFUSION [Suspect]
     Active Substance: CYCLOSPORINE
     Indication: APLASTIC ANAEMIA
     Dosage: 250 ML
     Route: 065
     Dates: start: 20200218, end: 20200316
  11. CONCENTRATED RED CELLS [Concomitant]
     Active Substance: HUMAN RED BLOOD CELL
     Dosage: 4400 ML, TRANSFUSION FREQUENCY 11/MONTH
     Route: 065
     Dates: start: 20200128, end: 20200224
  12. PLATELETS [Concomitant]
     Active Substance: HUMAN PLATELET, ALLOGENIC
     Dosage: 4800 ML, TRANSFUSION FREQUENCY 24/MONTH
     Route: 065
     Dates: start: 20200128, end: 20200224
  13. REVOLADE TAB [Suspect]
     Active Substance: ELTROMBOPAG OLAMINE
     Indication: APLASTIC ANAEMIA
     Dosage: 75 MG
     Route: 048
     Dates: start: 20200128, end: 20200218
  14. THYMOGLOBULINE [Concomitant]
     Active Substance: LAPINE T-LYMPHOCYTE IMMUNE GLOBULIN
     Indication: APLASTIC ANAEMIA
     Dosage: 200 MG
     Route: 065
     Dates: start: 20200128, end: 20200201

REACTIONS (9)
  - Septic shock [Not Recovered/Not Resolved]
  - Gastric perforation [Not Recovered/Not Resolved]
  - Disease progression [Unknown]
  - Enteritis infectious [Recovering/Resolving]
  - General physical health deterioration [Unknown]
  - Febrile neutropenia [Recovering/Resolving]
  - Aplastic anaemia [Unknown]
  - Renal failure [Fatal]
  - Fluid retention [Unknown]

NARRATIVE: CASE EVENT DATE: 20200203
